FAERS Safety Report 13331243 (Version 2)
Quarter: 2022Q2

REPORT INFORMATION
  Report Type: Report from Study
  Country: US (occurrence: US)
  Receive Date: 20170314
  Receipt Date: 20220414
  Transmission Date: 20220721
  Serious: Yes (Hospitalization, Other)
  Sender: FDA-Public Use
  Company Number: US-AMGEN-USASL2017035540

PATIENT
  Age: 63 Year
  Sex: Female

DRUGS (5)
  1. ENBREL [Suspect]
     Active Substance: ETANERCEPT
     Indication: Rheumatoid arthritis
     Dosage: 50 MILLIGRAM, QWK
     Route: 065
     Dates: start: 2004
  2. ENBREL [Suspect]
     Active Substance: ETANERCEPT
     Dosage: 25 MILLIGRAM, 2 TIMES/WK
     Route: 065
  3. ENBREL [Suspect]
     Active Substance: ETANERCEPT
     Dosage: 25 MILLIGRAM, 2 TIMES/WK
     Route: 065
  4. METHOTREXATE [Concomitant]
     Active Substance: METHOTREXATE
     Dosage: UNK, WEDNESDAYS
  5. PLAQUENIL [Concomitant]
     Active Substance: HYDROXYCHLOROQUINE SULFATE
     Dosage: UNK

REACTIONS (14)
  - Post procedural haemorrhage [Unknown]
  - Retinal haemorrhage [Unknown]
  - Face lift [Unknown]
  - Macular rupture [Unknown]
  - Blindness unilateral [Unknown]
  - Diverticulitis [Unknown]
  - Intracranial pressure increased [Unknown]
  - Suture rupture [Recovered/Resolved]
  - Mammoplasty [Unknown]
  - Impaired healing [Unknown]
  - Urinary tract infection [Unknown]
  - Injection site pain [Unknown]
  - Tooth fracture [Not Recovered/Not Resolved]
  - Intraocular pressure increased [Unknown]

NARRATIVE: CASE EVENT DATE: 20151001
